FAERS Safety Report 14242708 (Version 1)
Quarter: 2017Q4

REPORT INFORMATION
  Report Type: Spontaneous
  Country: US (occurrence: None)
  Receive Date: 20171130
  Receipt Date: 20171130
  Transmission Date: 20180321
  Serious: Yes (Hospitalization)
  Sender: FDA-Public Use
  Company Number: None

PATIENT
  Age: 58 Year
  Sex: Female

DRUGS (6)
  1. ZORTRESS [Suspect]
     Active Substance: EVEROLIMUS
     Indication: CHRONIC KIDNEY DISEASE
     Dosage: 0.5MG 2BID PO
     Route: 048
     Dates: start: 20170914
  2. TACROLIMUS 1 MG [Suspect]
     Active Substance: TACROLIMUS
     Indication: HEART TRANSPLANT
     Route: 048
     Dates: start: 20170303
  3. TACROLIMUS 1 MG [Suspect]
     Active Substance: TACROLIMUS
     Indication: RENAL TRANSPLANT
     Route: 048
     Dates: start: 20170303
  4. TACROLIMUS 1 MG [Suspect]
     Active Substance: TACROLIMUS
     Indication: CHRONIC KIDNEY DISEASE
     Route: 048
     Dates: start: 20170303
  5. ZORTRESS [Suspect]
     Active Substance: EVEROLIMUS
     Indication: RENAL TRANSPLANT
     Dosage: 0.5MG 2BID PO
     Route: 048
     Dates: start: 20170914
  6. ZORTRESS [Suspect]
     Active Substance: EVEROLIMUS
     Indication: HEART TRANSPLANT
     Dosage: 0.5MG 2BID PO
     Route: 048
     Dates: start: 20170914

REACTIONS (2)
  - Drug dose omission [None]
  - Oedema [None]

NARRATIVE: CASE EVENT DATE: 20171120
